FAERS Safety Report 16475466 (Version 2)
Quarter: 2019Q2

REPORT INFORMATION
  Report Type: Spontaneous
  Country: GB (occurrence: GB)
  Receive Date: 20190625
  Receipt Date: 20190625
  Transmission Date: 20190711
  Serious: Yes (Hospitalization, Other)
  Sender: FDA-Public Use
  Company Number: GB-DEXPHARM-20190433

PATIENT
  Age: 81 Year
  Sex: Female
  Weight: 58 kg

DRUGS (9)
  1. LOPERAMIDE [Concomitant]
     Active Substance: LOPERAMIDE
  2. OMEPRAZOLE. [Suspect]
     Active Substance: OMEPRAZOLE
     Indication: DYSPEPSIA
     Route: 048
     Dates: start: 20100701, end: 20190514
  3. PARACETAMOL [Concomitant]
     Active Substance: ACETAMINOPHEN
  4. GABAPENTIN. [Concomitant]
     Active Substance: GABAPENTIN
  5. LYNLOR [Concomitant]
     Active Substance: OXYCODONE HYDROCHLORIDE
  6. FELODIPINE. [Concomitant]
     Active Substance: FELODIPINE
  7. BISOPROLOL [Concomitant]
     Active Substance: BISOPROLOL
  8. VITAMIN B12 [Concomitant]
     Active Substance: CYANOCOBALAMIN
  9. FOLIC ACID. [Concomitant]
     Active Substance: FOLIC ACID

REACTIONS (1)
  - Hypomagnesaemia [Recovered/Resolved]

NARRATIVE: CASE EVENT DATE: 20190509
